FAERS Safety Report 4919905-8 (Version None)
Quarter: 2006Q1

REPORT INFORMATION
  Report Type: 
  Country: None (occurrence: None)
  Receive Date: 20060223
  Receipt Date: 20060213
  Transmission Date: 20060701
  Serious: Yes (Death)
  Sender: FDA-Public Use
  Company Number: US-JNJFOC-20060203231

PATIENT
  Sex: Male
  Weight: 99.79 kg

DRUGS (1)
  1. TOPAMAX [Suspect]
     Indication: NEURALGIA
     Route: 048

REACTIONS (1)
  - DEATH [None]
